FAERS Safety Report 5218340-5 (Version None)
Quarter: 2007Q1

REPORT INFORMATION
  Report Type: 
  Country: None (occurrence: None)
  Receive Date: 20061201
  Receipt Date: 20060306
  Transmission Date: 20070707
  Serious: Yes (Other)
  Sender: FDA-Public Use
  Company Number: PHEH2006US03021

PATIENT
  Age: 22 Year
  Sex: Female

DRUGS (1)
  1. LAMISIL [Suspect]
     Indication: NAIL TINEA
     Dosage: 250 MG, QD, ORAL
     Route: 048
     Dates: start: 20060214, end: 20060228

REACTIONS (6)
  - PAIN IN EXTREMITY [None]
  - PERIORBITAL OEDEMA [None]
  - PRURITUS [None]
  - RASH MACULAR [None]
  - SWELLING FACE [None]
  - URTICARIA [None]
